FAERS Safety Report 11146759 (Version 3)
Quarter: 2015Q3

REPORT INFORMATION
  Report Type: Spontaneous
  Country: US (occurrence: US)
  Receive Date: 20150528
  Receipt Date: 20150804
  Transmission Date: 20151125
  Serious: Yes (Hospitalization, Other)
  Sender: FDA-Public Use
  Company Number: US-TEVA-565319USA

PATIENT
  Age: 33 Year
  Sex: Female

DRUGS (3)
  1. ADCIRCA [Concomitant]
     Active Substance: TADALAFIL
  2. EPOPROSTENOL. [Suspect]
     Active Substance: EPOPROSTENOL
     Dosage: 1.5 MG VIAL,  12 NG/KG/MIN
     Route: 042
     Dates: start: 20150326
  3. EPOPROSTENOL. [Suspect]
     Active Substance: EPOPROSTENOL
     Indication: PULMONARY ARTERIAL HYPERTENSION
     Dosage: 1.5 MG VIAL, 76 MG/HR, 11 NG/KG/MIN
     Route: 065
     Dates: start: 20150326

REACTIONS (7)
  - Caesarean section [Unknown]
  - Post procedural infection [Unknown]
  - Rash generalised [Unknown]
  - Drug hypersensitivity [Unknown]
  - Cellulitis [Unknown]
  - Live birth [Unknown]
  - Infusion site erythema [Unknown]

NARRATIVE: CASE EVENT DATE: 20150520
